FAERS Safety Report 20766502 (Version 1)
Quarter: 2022Q2

REPORT INFORMATION
  Report Type: Spontaneous
  Country: JP (occurrence: JP)
  Receive Date: 20220428
  Receipt Date: 20220428
  Transmission Date: 20220721
  Serious: Yes (Other)
  Sender: FDA-Public Use
  Company Number: JP-SA-2022SA147376

PATIENT
  Age: 63 Year
  Sex: Female

DRUGS (1)
  1. THYMOGLOBULINE [Suspect]
     Active Substance: LAPINE T-LYMPHOCYTE IMMUNE GLOBULIN
     Indication: Prophylaxis
     Dosage: 1.0 MG/KG/DAY FOR 2 DAYS
     Route: 041

REACTIONS (3)
  - Adult T-cell lymphoma/leukaemia [Unknown]
  - Disease recurrence [Unknown]
  - Lymphadenopathy [Unknown]
